FAERS Safety Report 8360021-3 (Version None)
Quarter: 2012Q2

REPORT INFORMATION
  Report Type: 
  Country: None (occurrence: None)
  Receive Date: 20120515
  Receipt Date: 20120504
  Transmission Date: 20120825
  Serious: Yes (Other)
  Sender: FDA-Public Use
  Company Number: FR-FRI-1000022232

PATIENT
  Sex: Female
  Weight: 93 kg

DRUGS (7)
  1. LEVOTHYROXINE SODIUM [Concomitant]
     Route: 048
     Dates: start: 20030408
  2. CANDESARTAN CILEXETIL AND HYDROCHLOROTHIAZIDE [Concomitant]
     Dosage: 1 DF
     Route: 048
     Dates: start: 20061220
  3. TRANXENE [Concomitant]
     Dosage: 1 DF
     Dates: start: 20061119
  4. MEDIATOR [Suspect]
     Dosage: 1 DF
     Route: 048
     Dates: start: 20010103, end: 20100204
  5. TRANXENE [Concomitant]
     Dates: start: 20110422
  6. CITALOPRAM HYDROBROMIDE [Suspect]
     Indication: DEPRESSION
     Dosage: 20 MG
     Dates: start: 20060619, end: 20110422
  7. PRAVIGARD PAC (COPACKAGED) [Concomitant]
     Dosage: 1 DF
     Route: 048
     Dates: start: 20061220

REACTIONS (1)
  - CARDIAC VALVE DISEASE [None]
